FAERS Safety Report 4886726-4 (Version None)
Quarter: 2006Q1

REPORT INFORMATION
  Report Type: 
  Country: None (occurrence: None)
  Receive Date: 20060119
  Receipt Date: 20060105
  Transmission Date: 20060701
  Serious: Yes (Hospitalization)
  Sender: FDA-Public Use
  Company Number: 8013550

PATIENT
  Sex: Male

DRUGS (1)
  1. KEPPRA [Suspect]
     Indication: MYOCLONUS
     Dosage: 125 MG /D
     Dates: start: 20040622, end: 20040625

REACTIONS (2)
  - CONDITION AGGRAVATED [None]
  - CONVULSION [None]
